FAERS Safety Report 8578792-X (Version None)
Quarter: 2012Q3

REPORT INFORMATION
  Report Type: 
  Country: None (occurrence: None)
  Receive Date: 20120801
  Receipt Date: 20120801
  Transmission Date: 20120928
  Serious: Yes (Other)
  Sender: FDA-Public Use
  Company Number: None

PATIENT
  Age: 56 Year
  Sex: Female
  Weight: 71.6683 kg

DRUGS (2)
  1. ESCITALOPRAM [Suspect]
     Indication: IRRITABLE BOWEL SYNDROME
     Dosage: 10 MG DAILY PO
     Route: 048
     Dates: start: 20120510, end: 20120731
  2. ESCITALOPRAM [Suspect]
     Indication: GENERALISED ANXIETY DISORDER
     Dosage: 10 MG DAILY PO
     Route: 048
     Dates: start: 20120510, end: 20120731

REACTIONS (6)
  - FEELING OF DESPAIR [None]
  - DRUG EFFECT DECREASED [None]
  - PRODUCT SUBSTITUTION ISSUE [None]
  - CONDITION AGGRAVATED [None]
  - IRRITABLE BOWEL SYNDROME [None]
  - ANXIETY [None]
